FAERS Safety Report 10005980 (Version 1)
Quarter: 2014Q1

REPORT INFORMATION
  Report Type: Spontaneous
  Country: GB (occurrence: GB)
  Receive Date: 20140313
  Receipt Date: 20140313
  Transmission Date: 20141002
  Serious: Yes (Other)
  Sender: FDA-Public Use
  Company Number: GB-JNJFOC-20140303743

PATIENT
  Sex: Female

DRUGS (7)
  1. CETIRIZINE HYDROCHLORIDE [Suspect]
     Route: 065
  2. CETIRIZINE HYDROCHLORIDE [Suspect]
     Indication: CHRONIC SPONTANEOUS URTICARIA
     Route: 065
  3. CICLOSPORIN [Suspect]
     Indication: CHRONIC SPONTANEOUS URTICARIA
     Route: 065
     Dates: start: 201310
  4. HYDROXYZINE [Suspect]
     Indication: CHRONIC SPONTANEOUS URTICARIA
     Route: 065
  5. MONTELUKAST SODIUM [Suspect]
     Indication: CHRONIC SPONTANEOUS URTICARIA
     Route: 065
  6. FEXOFENADINE [Suspect]
     Indication: CHRONIC SPONTANEOUS URTICARIA
     Route: 065
  7. RANITIDINE [Suspect]
     Indication: CHRONIC SPONTANEOUS URTICARIA
     Route: 065

REACTIONS (6)
  - Angioedema [Unknown]
  - Chronic spontaneous urticaria [Recovering/Resolving]
  - Condition aggravated [Recovering/Resolving]
  - Drug ineffective [Unknown]
  - Pruritus [Unknown]
  - Insomnia [Unknown]
